FAERS Safety Report 8381978-0 (Version None)
Quarter: 2012Q2

REPORT INFORMATION
  Report Type: 
  Country: None (occurrence: None)
  Receive Date: 20120522
  Receipt Date: 20120522
  Transmission Date: 20120825
  Serious: Yes (Life-Threatening)
  Sender: FDA-Public Use
  Company Number: None

PATIENT
  Sex: Female
  Weight: 53.12 kg

DRUGS (1)
  1. FERAHEME [Suspect]

REACTIONS (1)
  - ANAPHYLACTIC REACTION [None]
